FAERS Safety Report 17882363 (Version 9)
Quarter: 2022Q3

REPORT INFORMATION
  Report Type: Spontaneous
  Country: GB (occurrence: GB)
  Receive Date: 20200610
  Receipt Date: 20220822
  Transmission Date: 20221027
  Serious: Yes (Death, Other)
  Sender: FDA-Public Use
  Company Number: GB-009507513-2006GBR000756

PATIENT
  Age: 57 Year
  Sex: Male

DRUGS (28)
  1. ACYCLOVIR [Suspect]
     Active Substance: ACYCLOVIR
     Indication: Product used for unknown indication
     Dosage: 400 MILLIGRAM, QD
     Route: 065
  2. NORVIR [Suspect]
     Active Substance: RITONAVIR
     Indication: Product used for unknown indication
     Dosage: 100 MILLIGRAM, ONCE A DAY(100 MILLIGRAM , BID)
     Route: 065
  3. NORVIR [Suspect]
     Active Substance: RITONAVIR
     Dosage: UNK, QD
     Route: 065
  4. NORVIR [Suspect]
     Active Substance: RITONAVIR
     Dosage: 100 MILLIGRAM, QD (100 MG, 1X/DAY)
     Route: 065
  5. NORVIR [Suspect]
     Active Substance: RITONAVIR
     Route: 065
  6. DARUNAVIR [Suspect]
     Active Substance: DARUNAVIR
     Indication: Product used for unknown indication
     Route: 065
  7. LAMIVUDINE [Suspect]
     Active Substance: LAMIVUDINE
     Indication: Product used for unknown indication
     Dosage: 300 MG (150 MILLIGRAM, BID)
     Route: 065
  8. LAMIVUDINE [Suspect]
     Active Substance: LAMIVUDINE
     Route: 065
  9. LAMIVUDINE [Suspect]
     Active Substance: LAMIVUDINE
     Route: 065
  10. LAMIVUDINE [Suspect]
     Active Substance: LAMIVUDINE
     Route: 065
  11. LAMIVUDINE [Suspect]
     Active Substance: LAMIVUDINE
     Route: 065
  12. ISENTRESS [Suspect]
     Active Substance: RALTEGRAVIR POTASSIUM
     Indication: Product used for unknown indication
     Dosage: 400 MILLIGRAM, QD
     Route: 048
  13. ISENTRESS [Suspect]
     Active Substance: RALTEGRAVIR POTASSIUM
     Dosage: 2X/DAY
     Route: 065
  14. ISENTRESS [Suspect]
     Active Substance: RALTEGRAVIR POTASSIUM
     Dosage: 400 MILLIGRAM, QD
     Route: 048
  15. ISENTRESS [Suspect]
     Active Substance: RALTEGRAVIR POTASSIUM
     Dosage: DF, 2X/DAY (ONCE A DAY, BID)
     Route: 048
  16. ISENTRESS [Suspect]
     Active Substance: RALTEGRAVIR POTASSIUM
     Dosage: DF, 2X/DAY (ONCE A DAY, BID)
     Route: 048
  17. PREZISTA [Suspect]
     Active Substance: DARUNAVIR ETHANOLATE
     Indication: Product used for unknown indication
     Dosage: UNK, QD
     Route: 065
  18. PREZISTA [Suspect]
     Active Substance: DARUNAVIR ETHANOLATE
     Dosage: 600 MILLIGRAM, QD
     Route: 065
  19. PREZISTA [Suspect]
     Active Substance: DARUNAVIR ETHANOLATE
     Dosage: UNK, BID
     Route: 065
  20. TENOFOVIR DISOPROXIL [Suspect]
     Active Substance: TENOFOVIR DISOPROXIL
     Indication: Product used for unknown indication
     Route: 065
  21. TENOFOVIR DISOPROXIL [Suspect]
     Active Substance: TENOFOVIR DISOPROXIL
     Route: 065
  22. TENOFOVIR DISOPROXIL [Suspect]
     Active Substance: TENOFOVIR DISOPROXIL
     Route: 065
  23. TENOFOVIR DISOPROXIL [Suspect]
     Active Substance: TENOFOVIR DISOPROXIL
     Route: 065
  24. TENOFOVIR DISOPROXIL [Suspect]
     Active Substance: TENOFOVIR DISOPROXIL
     Dosage: 150 MILLIGRAM, QD
     Route: 065
  25. LAMIVUDINE [Suspect]
     Active Substance: LAMIVUDINE
     Indication: Product used for unknown indication
     Dosage: 300 MILLIGRAM, QD ,(BID)
     Route: 065
  26. LAMIVUDINE [Suspect]
     Active Substance: LAMIVUDINE
     Dosage: 150 MILLIGRAM, BID
     Route: 065
  27. VIREAD [Suspect]
     Active Substance: TENOFOVIR DISOPROXIL FUMARATE
     Indication: Product used for unknown indication
     Route: 065
  28. RAMIPRIL [Concomitant]
     Active Substance: RAMIPRIL
     Indication: Product used for unknown indication
     Route: 065

REACTIONS (3)
  - Fall [Fatal]
  - Brain stem stroke [Fatal]
  - Death [Fatal]

NARRATIVE: CASE EVENT DATE: 20200401
